FAERS Safety Report 15598750 (Version 1)
Quarter: 2018Q4

REPORT INFORMATION
  Report Type: Spontaneous
  Country: CA (occurrence: CA)
  Receive Date: 20181108
  Receipt Date: 20181108
  Transmission Date: 20190205
  Serious: Yes (Other)
  Sender: FDA-Public Use
  Company Number: CA-PFIZER INC-2018354076

PATIENT
  Age: 71 Year
  Sex: Female

DRUGS (9)
  1. XELJANZ [Suspect]
     Active Substance: TOFACITINIB CITRATE
     Indication: RHEUMATOID ARTHRITIS
     Dosage: 5 MG, TWICE A DAY (BID)
     Route: 048
     Dates: start: 20180730
  2. PLAQUENIL [Concomitant]
     Active Substance: HYDROXYCHLOROQUINE SULFATE
     Dosage: 400 MG, ONCE PER DAY (OD)
     Route: 048
     Dates: start: 201601
  3. FOLIC ACID. [Concomitant]
     Active Substance: FOLIC ACID
     Dosage: 5 MG, ONCE PER DAY (OD)
     Route: 048
  4. ACTEMRA [Concomitant]
     Active Substance: TOCILIZUMAB
     Dosage: UNK
  5. NEURONTIN [Concomitant]
     Active Substance: GABAPENTIN
     Dosage: 800 MG, EVERY NIGHT AT BED TIME (QHS)
     Route: 048
  6. KETOPROFEN. [Concomitant]
     Active Substance: KETOPROFEN
     Dosage: UNK, APPLIED FOUR TIMES PER DAY (QID) AS NEEDED (PRN)
     Route: 061
  7. TYLENOL ARTHRITIS PAIN [Concomitant]
     Active Substance: ACETAMINOPHEN
     Dosage: 1 TABLET (DF), THREE TIMES PER DAY (TID)
     Route: 048
  8. METHOTREXATE SODIUM. [Concomitant]
     Active Substance: METHOTREXATE SODIUM
     Indication: RHEUMATOID ARTHRITIS
     Dosage: 25 MG, WEEKLY
     Route: 058
     Dates: start: 2017
  9. PREDNISONE. [Concomitant]
     Active Substance: PREDNISONE
     Dosage: UNK (TAPERING)

REACTIONS (3)
  - Drug effect delayed [Unknown]
  - Infection [Unknown]
  - Carpal tunnel syndrome [Unknown]
